FAERS Safety Report 17562519 (Version 1)
Quarter: 2020Q1

REPORT INFORMATION
  Report Type: Report from Study
  Country: GB (occurrence: CO)
  Receive Date: 20200319
  Receipt Date: 20200319
  Transmission Date: 20200409
  Serious: Yes (Other)
  Sender: FDA-Public Use
  Company Number: CO-ASTELLAS-2020US008917

PATIENT
  Sex: Male

DRUGS (2)
  1. MORPHINE [Concomitant]
     Active Substance: MORPHINE
     Indication: PRODUCT USED FOR UNKNOWN INDICATION
     Dosage: UNK, UNKNOWN FREQ.
     Route: 065
  2. ERLOTINIB [Suspect]
     Active Substance: ERLOTINIB
     Indication: PRODUCT USED FOR UNKNOWN INDICATION
     Dosage: UNK, UNKNOWN FREQ.
     Route: 048

REACTIONS (13)
  - Vein discolouration [Unknown]
  - Skin exfoliation [Unknown]
  - Exfoliative rash [Unknown]
  - Acne [Unknown]
  - Pain in extremity [Unknown]
  - Scratch [Unknown]
  - Malaise [Unknown]
  - Venous occlusion [Unknown]
  - Malignant neoplasm progression [Unknown]
  - Pain [Unknown]
  - Rash [Unknown]
  - Skin discolouration [Unknown]
  - Localised infection [Unknown]
